FAERS Safety Report 9753632 (Version 4)
Quarter: 2014Q1

REPORT INFORMATION
  Report Type: Report from Study
  Country: DE (occurrence: DE)
  Receive Date: 20131213
  Receipt Date: 20140113
  Transmission Date: 20141002
  Serious: Yes (Death, Hospitalization)
  Sender: FDA-Public Use
  Company Number: PHHY2013DE111664

PATIENT
  Sex: Male

DRUGS (9)
  1. AFINITOR [Suspect]
     Indication: PANCREATIC NEUROENDOCRINE TUMOUR
     Dosage: 5 MG, DAILY
     Route: 048
     Dates: start: 20130102
  2. AFINITOR [Suspect]
     Dosage: 10 MG, DAILY
     Route: 048
     Dates: start: 20130214
  3. AFINITOR [Suspect]
     Dosage: 5 MG, DAILY
     Route: 048
     Dates: start: 20130920, end: 20130920
  4. AMLODIPINE [Concomitant]
     Indication: RENAL FAILURE
     Dates: start: 20130714
  5. PRAMIPEXOLE [Concomitant]
     Indication: RENAL FAILURE
     Dates: start: 20120820
  6. FELODIPINE [Concomitant]
     Indication: RENAL FAILURE
     Dates: start: 20120820
  7. XIPAMIDE [Concomitant]
     Indication: RENAL FAILURE
     Dates: start: 20120820
  8. CANDESARTAN [Concomitant]
     Indication: RENAL FAILURE
     Dates: start: 20120820
  9. BISOPROLOL [Concomitant]
     Indication: HYPERTENSION
     Dates: start: 20070225

REACTIONS (7)
  - Death [Fatal]
  - Metabolic encephalopathy [Recovered/Resolved]
  - Septic encephalopathy [Unknown]
  - Uraemic encephalopathy [Unknown]
  - Hepatic encephalopathy [Unknown]
  - Disorientation [Recovered/Resolved]
  - Hyporesponsive to stimuli [Recovered/Resolved]
